FAERS Safety Report 5942726-4 (Version None)
Quarter: 2008Q4

REPORT INFORMATION
  Report Type: 
  Country: None (occurrence: None)
  Receive Date: 20081103
  Receipt Date: 20081012
  Transmission Date: 20090506
  Serious: No
  Sender: FDA-Public Use
  Company Number: CHPA2008US17956

PATIENT
  Age: 26 Year
  Sex: Male

DRUGS (5)
  1. ACETAMINOPHEN PARACETAMOL), DIPHENHYDRAMINE HYDROCHLORIDE (NCH)(ACETAM [Suspect]
     Dosage: ORAL
     Route: 048
  2. LAMOTRIGINE [Suspect]
     Dosage: ORAL
     Route: 048
  3. ZYPREXA [Suspect]
     Dosage: ORAL
     Route: 048
  4. ACETAMINOPHEN [Suspect]
     Dosage: ORAL
     Route: 048
  5. VENLAFAXINE HCL [Suspect]
     Dosage: ORAL
     Route: 048

REACTIONS (1)
  - COMPLETED SUICIDE [None]
